FAERS Safety Report 23838751 (Version 1)
Quarter: 2024Q2

REPORT INFORMATION
  Report Type: Spontaneous
  Country: IN (occurrence: IN)
  Receive Date: 20240509
  Receipt Date: 20240509
  Transmission Date: 20240716
  Serious: Yes (Hospitalization)
  Sender: FDA-Public Use
  Company Number: IN-PFIZER INC-PV202400044859

PATIENT
  Age: 58 Year
  Sex: Female

DRUGS (2)
  1. PALBOCICLIB [Suspect]
     Active Substance: PALBOCICLIB
     Dosage: UNK
     Route: 048
     Dates: start: 20211218
  2. PALBOCICLIB [Suspect]
     Active Substance: PALBOCICLIB
     Dosage: 125 MG, 1X/DAY
     Route: 048

REACTIONS (7)
  - Hepatic cirrhosis [Unknown]
  - Asthenia [Unknown]
  - Blood pressure decreased [Unknown]
  - Nerve injury [Unknown]
  - Arthritis [Unknown]
  - Fatigue [Unknown]
  - Mental disorder [Unknown]

NARRATIVE: CASE EVENT DATE: 20240201
